FAERS Safety Report 23987875 (Version 2)
Quarter: 2024Q3

REPORT INFORMATION
  Report Type: Report from Study
  Country: JP (occurrence: JP)
  Receive Date: 20240619
  Receipt Date: 20240920
  Transmission Date: 20241017
  Serious: Yes (Death)
  Sender: JOHNSON AND JOHNSON
  Company Number: JP-MTPC-MTPC2024-0012301

PATIENT
  Age: 77 Year
  Sex: Male

DRUGS (7)
  1. CANAGLIFLOZIN [Suspect]
     Active Substance: CANAGLIFLOZIN
     Indication: Type 2 diabetes mellitus
     Dosage: 100 MILLIGRAM, QD
     Route: 048
     Dates: start: 20231222, end: 20240105
  2. CANAGLIFLOZIN [Suspect]
     Active Substance: CANAGLIFLOZIN
     Indication: Chronic kidney disease
     Route: 048
  3. DILAZEP [Concomitant]
     Active Substance: DILAZEP
     Dosage: 300 MILLIGRAM, QD
     Route: 048
     Dates: end: 20240110
  4. ATORVASTATIN [Concomitant]
     Active Substance: ATORVASTATIN
     Dosage: 5 MILLIGRAM, QD
     Route: 048
     Dates: end: 20240110
  5. OLMESARTAN [Concomitant]
     Active Substance: OLMESARTAN
     Dosage: 40 MILLIGRAM, QD
     Route: 048
     Dates: end: 20240110
  6. VOGLIBOSE [Concomitant]
     Active Substance: VOGLIBOSE
     Dosage: 0.6 MILLIGRAM, QD
     Route: 048
     Dates: end: 20240110
  7. RYBELSUS [Concomitant]
     Active Substance: SEMAGLUTIDE
     Dosage: 3 MILLIGRAM, QD
     Route: 048
     Dates: start: 20231221, end: 20240110

REACTIONS (1)
  - Myocardial infarction [Fatal]

NARRATIVE: CASE EVENT DATE: 20240105
